FAERS Safety Report 19161031 (Version 22)
Quarter: 2021Q3

REPORT INFORMATION
  Report Type: Spontaneous
  Country: US (occurrence: US)
  Receive Date: 20210421
  Receipt Date: 20210804
  Transmission Date: 20211014
  Serious: Yes (Hospitalization, Other)
  Sender: FDA-Public Use
  Company Number: US-BIOGEN-2021BI01001791

PATIENT
  Age: 44 Year
  Sex: Female

DRUGS (3)
  1. TYSABRI [Suspect]
     Active Substance: NATALIZUMAB
     Indication: MULTIPLE SCLEROSIS
     Dosage: INFUSED OVER 1 HOUR
     Route: 065
     Dates: start: 20210226
  2. DECADRON [Suspect]
     Active Substance: DEXAMETHASONE
     Indication: GAIT INABILITY
     Route: 042
  3. SOLU?MEDROL [Suspect]
     Active Substance: METHYLPREDNISOLONE SODIUM SUCCINATE
     Indication: PRODUCT USED FOR UNKNOWN INDICATION
     Route: 065

REACTIONS (56)
  - Nasal congestion [Unknown]
  - Hypersensitivity [Unknown]
  - Multiple sclerosis [Recovered/Resolved]
  - Skin warm [Unknown]
  - Joint swelling [Unknown]
  - Balance disorder [Unknown]
  - Muscular weakness [Not Recovered/Not Resolved]
  - Mouth swelling [Unknown]
  - Rhinorrhoea [Recovered/Resolved]
  - Nausea [Not Recovered/Not Resolved]
  - Dysgeusia [Not Recovered/Not Resolved]
  - Memory impairment [Unknown]
  - Off label use [Recovered/Resolved]
  - Abdominal distension [Not Recovered/Not Resolved]
  - Dehydration [Unknown]
  - Tinnitus [Not Recovered/Not Resolved]
  - Fatigue [Not Recovered/Not Resolved]
  - Infusion site haemorrhage [Recovered/Resolved]
  - Dry mouth [Recovered/Resolved]
  - Hot flush [Recovered/Resolved]
  - Neurological symptom [Not Recovered/Not Resolved]
  - Relapsing multiple sclerosis [Not Recovered/Not Resolved]
  - Malaise [Unknown]
  - Rhinorrhoea [Not Recovered/Not Resolved]
  - Ageusia [Not Recovered/Not Resolved]
  - Seizure [Recovered/Resolved with Sequelae]
  - Parosmia [Not Recovered/Not Resolved]
  - Visual impairment [Not Recovered/Not Resolved]
  - General physical health deterioration [Not Recovered/Not Resolved]
  - Weight increased [Unknown]
  - Back pain [Unknown]
  - Aphasia [Recovered/Resolved]
  - Erythema [Unknown]
  - Swelling [Unknown]
  - Dizziness [Not Recovered/Not Resolved]
  - Arthralgia [Not Recovered/Not Resolved]
  - Muscle spasms [Recovered/Resolved]
  - Vertigo [Not Recovered/Not Resolved]
  - Drug hypersensitivity [Recovered/Resolved]
  - Retinal vascular thrombosis [Unknown]
  - Irritable bowel syndrome [Not Recovered/Not Resolved]
  - Swelling face [Unknown]
  - Nasal discomfort [Unknown]
  - Hypoaesthesia oral [Recovered/Resolved]
  - Ear discomfort [Recovered/Resolved]
  - Gait disturbance [Unknown]
  - Eyelid function disorder [Not Recovered/Not Resolved]
  - Stress [Unknown]
  - Burning sensation [Unknown]
  - Eye pain [Unknown]
  - Swollen tongue [Recovered/Resolved]
  - Body temperature increased [Recovered/Resolved]
  - Peripheral swelling [Not Recovered/Not Resolved]
  - Urinary tract infection [Not Recovered/Not Resolved]
  - Myalgia [Unknown]
  - Dyspnoea [Unknown]

NARRATIVE: CASE EVENT DATE: 2021
